FAERS Safety Report 8822918 (Version 6)
Quarter: 2013Q4

REPORT INFORMATION
  Report Type: Report from Study
  Country: AU (occurrence: AU)
  Receive Date: 20121003
  Receipt Date: 20131115
  Transmission Date: 20140711
  Serious: Yes (Hospitalization, Other)
  Sender: FDA-Public Use
  Company Number: PHHY2012AU084792

PATIENT
  Age: 31 Year
  Sex: Male

DRUGS (9)
  1. CLOZARIL [Suspect]
     Indication: SCHIZOPHRENIA
     Dosage: 400 MG
     Route: 048
     Dates: start: 20050111, end: 200601
  2. CLOZARIL [Suspect]
     Dosage: 200 MG, UNK
     Route: 048
     Dates: start: 20121011, end: 20121020
  3. CLOZARIL [Suspect]
     Dosage: 2 DF (100MG), DAILY
     Route: 048
     Dates: start: 20121027
  4. CLOZARIL [Suspect]
     Dosage: 200 MG
     Route: 048
     Dates: start: 20121028
  5. CLOZARIL [Suspect]
     Dosage: 200 MG
     Route: 048
     Dates: start: 20121029
  6. CLOZARIL [Suspect]
     Dosage: 200 MG
     Route: 048
     Dates: start: 20121030, end: 20131106
  7. CLOZAPINE [Suspect]
     Route: 048
     Dates: start: 2006, end: 2007
  8. CALCIUM + VITAMIN D [Concomitant]
     Indication: OSTEOPOROSIS PROPHYLAXIS
     Dosage: 600 MG, QD
     Route: 048
     Dates: start: 201111
  9. CALCIUM + VITAMIN D [Concomitant]
     Dosage: 1 DF, UNK

REACTIONS (9)
  - Infectious mononucleosis [Unknown]
  - Neutropenia [Unknown]
  - Syncope [Unknown]
  - Sinus tachycardia [Recovered/Resolved]
  - Sedation [Recovered/Resolved]
  - Leukopenia [Unknown]
  - Dizziness [Unknown]
  - Blood pressure increased [Unknown]
  - Antipsychotic drug level decreased [Unknown]
